FAERS Safety Report 19610187 (Version 3)
Quarter: 2021Q3

REPORT INFORMATION
  Report Type: Spontaneous
  Country: US (occurrence: US)
  Receive Date: 20210726
  Receipt Date: 20210831
  Transmission Date: 20211014
  Serious: No
  Sender: FDA-Public Use
  Company Number: US-GLAXOSMITHKLINE-US2021AMR156857

PATIENT
  Age: 87 Year
  Sex: Female

DRUGS (2)
  1. ZEJULA [Suspect]
     Active Substance: NIRAPARIB
     Indication: NEOPLASM PROPHYLAXIS
     Dosage: 200 MG, QD
     Dates: start: 20210708
  2. ZEJULA [Suspect]
     Active Substance: NIRAPARIB
     Indication: OVARIAN NEOPLASM

REACTIONS (16)
  - Nasal pruritus [Unknown]
  - Oropharyngeal pain [Unknown]
  - Cough [Unknown]
  - Discomfort [Unknown]
  - Eating disorder [Unknown]
  - Thyroid hormones increased [Unknown]
  - Arthralgia [Unknown]
  - Hypotension [Unknown]
  - Feeling abnormal [Unknown]
  - Musculoskeletal discomfort [Unknown]
  - Flatulence [Unknown]
  - Nasal dryness [Unknown]
  - Extra dose administered [Unknown]
  - Gallbladder disorder [Unknown]
  - Nasal discomfort [Unknown]
  - Off label use [Unknown]

NARRATIVE: CASE EVENT DATE: 20210708
